FAERS Safety Report 4355794-0 (Version None)
Quarter: 2004Q2

REPORT INFORMATION
  Report Type: 
  Country: None (occurrence: None)
  Receive Date: 20040510
  Receipt Date: 20040510
  Transmission Date: 20050107
  Serious: Yes (Other)
  Sender: FDA-Public Use
  Company Number: None

PATIENT
  Age: 64 Year
  Sex: Male
  Weight: 103.8737 kg

DRUGS (6)
  1. ZYPREXA [Suspect]
     Indication: SCHIZOPHRENIA
     Dosage: 60 MG QHS
  2. CLEOCIN [Concomitant]
  3. FLUMOX [Concomitant]
  4. LASIX [Concomitant]
  5. HALDOL [Concomitant]
  6. VERAPAMIL [Concomitant]

REACTIONS (1)
  - BLOOD GLUCOSE INCREASED [None]
